FAERS Safety Report 10162824 (Version 3)
Quarter: 2014Q3

REPORT INFORMATION
  Report Type: Report from Study
  Country: GB (occurrence: GB)
  Receive Date: 20140509
  Receipt Date: 20140814
  Transmission Date: 20150326
  Serious: Yes (Other)
  Sender: FDA-Public Use
  Company Number: GB-ABBVIE-14P-167-1232191-00

PATIENT
  Age: 26 Year
  Sex: Female

DRUGS (6)
  1. HUMIRA [Suspect]
     Active Substance: ADALIMUMAB
     Indication: RHEUMATOID ARTHRITIS
     Dates: end: 20140718
  2. METHOTREXATE [Concomitant]
     Active Substance: METHOTREXATE
     Indication: PRODUCT USED FOR UNKNOWN INDICATION
  3. AMITRIPTYLINE [Concomitant]
     Active Substance: AMITRIPTYLINE
     Indication: PRODUCT USED FOR UNKNOWN INDICATION
  4. FOLIC ACID. [Concomitant]
     Active Substance: FOLIC ACID
     Indication: PRODUCT USED FOR UNKNOWN INDICATION
  5. COD LIVER OIL [Concomitant]
     Active Substance: COD LIVER OIL
     Indication: PRODUCT USED FOR UNKNOWN INDICATION
  6. PREDNISOLONE. [Concomitant]
     Active Substance: PREDNISOLONE
     Indication: PRODUCT USED FOR UNKNOWN INDICATION

REACTIONS (19)
  - Depression [Recovering/Resolving]
  - Anxiety [Recovering/Resolving]
  - Adverse drug reaction [Recovering/Resolving]
  - Negative thoughts [Recovering/Resolving]
  - Tremor [Recovering/Resolving]
  - Back pain [Recovering/Resolving]
  - Ear pain [Recovering/Resolving]
  - Malaise [Recovering/Resolving]
  - Headache [Recovering/Resolving]
  - Pain [Recovering/Resolving]
  - Family stress [Unknown]
  - Abdominal pain [Recovering/Resolving]
  - Depressed mood [Unknown]
  - Pain [Unknown]
  - Drug effect incomplete [Unknown]
  - Insomnia [Recovering/Resolving]
  - Motor dysfunction [Unknown]
  - X-ray limb [Unknown]
  - Sleep disorder [Recovering/Resolving]
